FAERS Safety Report 6731880-2 (Version None)
Quarter: 2010Q2

REPORT INFORMATION
  Report Type: 
  Country: None (occurrence: None)
  Receive Date: 20100514
  Receipt Date: 20100428
  Transmission Date: 20101027
  Serious: Yes (Other)
  Sender: FDA-Public Use
  Company Number: ACO_00775_2010

PATIENT
  Age: 54 Year
  Sex: Female

DRUGS (10)
  1. AMPYRA [Suspect]
     Indication: DRUG USE FOR UNKNOWN INDICATION
     Dosage: 10 MG BID, 12 HOURS APART ORAL
     Route: 048
     Dates: start: 20100401, end: 20100418
  2. BACLOFEN [Concomitant]
  3. ZOCOR [Concomitant]
  4. LISINOPRIL [Concomitant]
  5. HYDROCHLOROTHIAZIDE [Concomitant]
  6. PRILOSEC /00661201/ [Concomitant]
  7. AMITRIPTYLINE [Concomitant]
  8. EFFEXOR [Concomitant]
  9. ATENOLOL [Concomitant]
  10. MULTI-VITAMINS [Concomitant]

REACTIONS (2)
  - GRAND MAL CONVULSION [None]
  - LOSS OF CONSCIOUSNESS [None]
